FAERS Safety Report 5940194-X (Version None)
Quarter: 2008Q4

REPORT INFORMATION
  Report Type: 
  Country: None (occurrence: None)
  Receive Date: 20081031
  Receipt Date: 20081031
  Transmission Date: 20090506
  Serious: Yes (Hospitalization)
  Sender: FDA-Public Use
  Company Number: None

PATIENT
  Age: 62 Year
  Sex: Female
  Weight: 59.5 kg

DRUGS (3)
  1. CHLORPROMAZINE [Suspect]
     Indication: BIPOLAR DISORDER
     Dosage: 50 MG TID PO
     Route: 048
     Dates: start: 20080724, end: 20080904
  2. CHLORPROMAZINE [Suspect]
     Indication: MANIA
     Dosage: 50 MG TID PO
     Route: 048
     Dates: start: 20080724, end: 20080904
  3. CARBAMAZEPINE [Suspect]
     Indication: SCHIZOAFFECTIVE DISORDER
     Dosage: 200 MG TID PO
     Route: 048
     Dates: start: 20080714, end: 20080904

REACTIONS (8)
  - ABDOMINAL PAIN UPPER [None]
  - ABNORMAL BEHAVIOUR [None]
  - CHOLESTASIS [None]
  - JAUNDICE [None]
  - NAUSEA [None]
  - PSYCHOTIC DISORDER [None]
  - VOMITING [None]
  - WEIGHT DECREASED [None]
